FAERS Safety Report 16837928 (Version 2)
Quarter: 2019Q3

REPORT INFORMATION
  Report Type: Spontaneous
  Country: US (occurrence: US)
  Receive Date: 20190923
  Receipt Date: 20190926
  Transmission Date: 20191005
  Serious: No
  Sender: FDA-Public Use
  Company Number: US-BIOGEN-2019BI00782412

PATIENT
  Age: 59 Year
  Sex: Male

DRUGS (3)
  1. AVONEX [Suspect]
     Active Substance: INTERFERON BETA-1A
     Route: 030
     Dates: start: 20190903
  2. AVONEX [Suspect]
     Active Substance: INTERFERON BETA-1A
     Route: 030
     Dates: start: 19990701
  3. AVONEX [Suspect]
     Active Substance: INTERFERON BETA-1A
     Indication: MULTIPLE SCLEROSIS
     Route: 030
     Dates: start: 19990701, end: 201909

REACTIONS (8)
  - Product design confusion [Unknown]
  - Chills [Recovered/Resolved]
  - Influenza like illness [Unknown]
  - Motor dysfunction [Unknown]
  - Malaise [Unknown]
  - Pyrexia [Recovered/Resolved]
  - Asthenia [Recovered/Resolved with Sequelae]
  - Multiple sclerosis [Unknown]

NARRATIVE: CASE EVENT DATE: 19990701
